FAERS Safety Report 23643095 (Version 7)
Quarter: 2024Q3

REPORT INFORMATION
  Report Type: Spontaneous
  Country: US (occurrence: US)
  Receive Date: 20240318
  Receipt Date: 20240815
  Transmission Date: 20241016
  Serious: No
  Sender: PFIZER
  Company Number: US-PFIZER INC-202400065146

PATIENT
  Age: 67 Year
  Sex: Female
  Weight: 81.64 kg

DRUGS (13)
  1. CORTEF [Suspect]
     Active Substance: HYDROCORTISONE
     Indication: Adrenal insufficiency
     Dosage: 25 MG, DAILY (15MG IN THE MORNING AND 10MG IN THE AFTERNOON)
     Route: 048
     Dates: start: 20050801
  2. CORTEF [Suspect]
     Active Substance: HYDROCORTISONE
     Dosage: 15 MG MORNING
     Route: 048
     Dates: start: 20240303
  3. CORTEF [Suspect]
     Active Substance: HYDROCORTISONE
     Dosage: 10MG EVENING (BED TIME)
     Route: 048
     Dates: start: 20240305
  4. CORTEF [Suspect]
     Active Substance: HYDROCORTISONE
     Dosage: 20 MG MORNING AND 10MG IN THE AFTERNOON
     Route: 048
     Dates: start: 20240306, end: 20240306
  5. CORTEF [Suspect]
     Active Substance: HYDROCORTISONE
     Dosage: 25 MG, DAILY (15MG IN THE MORNING AND 10MG IN THE AFTERNOON)
     Route: 048
     Dates: start: 20240307
  6. HYDROCORTISONE [Suspect]
     Active Substance: HYDROCORTISONE\HYDROCORTISONE ACETATE
     Indication: Adrenal insufficiency
     Dosage: 25 MG, DAILY(15MG IN THE MORNING AND 10MG IN THE AFTERNOON)
     Route: 048
     Dates: start: 2019
  7. HYDROCORTISONE [Suspect]
     Active Substance: HYDROCORTISONE\HYDROCORTISONE ACETATE
     Dosage: GREENSTONE 10 MG AFTERNOON, 10 MG BEDTIME, 10MG STRESS DOSE (SPLIT DOSE DAILY)
     Route: 048
     Dates: start: 20240303
  8. HYDROCORTISONE [Suspect]
     Active Substance: HYDROCORTISONE\HYDROCORTISONE ACETATE
     Dosage: GREENSTONE 20 MG AM, 20 MG NOON, 20 MG AFTERNOON, 20 MG BEDTIME (SPLIT DOSE DAILY)
     Route: 048
     Dates: start: 20240304
  9. HYDROCORTISONE [Suspect]
     Active Substance: HYDROCORTISONE\HYDROCORTISONE ACETATE
     Dosage: 20 MG AM, 20 MG MID MORNING, 20 MG 2PM, 20 MG AFTERNOON (SPLIT DOSE DAILY)
     Route: 048
     Dates: start: 20240305, end: 20240305
  10. FLUDROCORTISONE [Concomitant]
     Active Substance: FLUDROCORTISONE
     Indication: Adrenal insufficiency
     Dosage: 0.05 MG, 1X/DAY
     Route: 048
  11. SYNTHROID [Concomitant]
     Active Substance: LEVOTHYROXINE SODIUM
     Indication: Hypothyroidism
     Dosage: 50 UG, 1X/DAY
     Route: 048
  12. SYNTHROID [Concomitant]
     Active Substance: LEVOTHYROXINE SODIUM
     Dosage: 25 UG, 1X/DAY
  13. LORAZEPAM [Concomitant]
     Active Substance: LORAZEPAM
     Indication: Anxiety
     Dosage: 1 MG, 2X/DAY
     Route: 048
     Dates: start: 2016

REACTIONS (4)
  - Blood potassium increased [Recovered/Resolved]
  - Asthenia [Recovered/Resolved]
  - Dizziness [Recovered/Resolved]
  - Intentional product use issue [Unknown]

NARRATIVE: CASE EVENT DATE: 20240303
